FAERS Safety Report 17762664 (Version 1)
Quarter: 2020Q2

REPORT INFORMATION
  Report Type: Spontaneous
  Country: DE (occurrence: DE)
  Receive Date: 20200508
  Receipt Date: 20200508
  Transmission Date: 20200714
  Serious: Yes (Other)
  Sender: FDA-Public Use
  Company Number: NVSC2020DE124880

PATIENT
  Age: 46 Year
  Sex: Male
  Weight: 107 kg

DRUGS (5)
  1. HYDROCHLOROTHIAZIDE. [Suspect]
     Active Substance: HYDROCHLOROTHIAZIDE
     Indication: HYPERTENSION
     Dosage: UNK
     Route: 065
  2. BISOPROLOL FUMARATE. [Suspect]
     Active Substance: BISOPROLOL FUMARATE
     Indication: HYPERTENSION
     Dosage: UNK
     Route: 065
  3. RAMIPRIL. [Suspect]
     Active Substance: RAMIPRIL
     Indication: HYPERTENSION
     Dosage: UNK
     Route: 065
  4. ISOPHANE INSULIN [Suspect]
     Active Substance: INSULIN NOS
     Indication: TYPE 2 DIABETES MELLITUS
     Dosage: CHANGE IN INSULIN DOSING
     Route: 065
  5. INSULIN LISPRO [Suspect]
     Active Substance: INSULIN LISPRO
     Indication: TYPE 2 DIABETES MELLITUS
     Dosage: CHANGE IN INSULIN DOSING
     Route: 065

REACTIONS (27)
  - Faeces pale [Unknown]
  - Condition aggravated [Unknown]
  - Blood alkaline phosphatase increased [Unknown]
  - Platelet count decreased [Unknown]
  - Bilirubin conjugated increased [Unknown]
  - Non-alcoholic steatohepatitis [Unknown]
  - Hepatic cirrhosis [Unknown]
  - Hepatomegaly [Unknown]
  - Blood bilirubin increased [Unknown]
  - Hepatic enzyme increased [Unknown]
  - Blood albumin decreased [Unknown]
  - Dyspnoea [Unknown]
  - Weight loss poor [Unknown]
  - Blood sodium decreased [Unknown]
  - Portal hypertension [Unknown]
  - Splenomegaly [Unknown]
  - Varices oesophageal [Unknown]
  - Metabolic syndrome [Unknown]
  - Gamma-glutamyltransferase increased [Unknown]
  - Cholestasis [Unknown]
  - Weight decreased [Unknown]
  - Hepatic fibrosis [Unknown]
  - Fatigue [Unknown]
  - Muscle spasms [Unknown]
  - Pruritus [Unknown]
  - Diabetes mellitus inadequate control [Unknown]
  - Ascites [Recovering/Resolving]
